FAERS Safety Report 12452127 (Version 1)
Quarter: 2016Q2

REPORT INFORMATION
  Report Type: Spontaneous
  Country: FR (occurrence: FR)
  Receive Date: 20160609
  Receipt Date: 20160609
  Transmission Date: 20160815
  Serious: Yes (Hospitalization, Other)
  Sender: FDA-Public Use
  Company Number: FR-TOLMAR, INC.-2016FR005677

PATIENT
  Age: 72 Year
  Sex: Male

DRUGS (11)
  1. COVERSYL                           /00790702/ [Concomitant]
     Active Substance: PERINDOPRIL
  2. NOVOMIX [Concomitant]
     Active Substance: INSULIN ASPART
  3. KAYEXALATE [Concomitant]
     Active Substance: SODIUM POLYSTYRENE SULFONATE
  4. ELIGARD [Suspect]
     Active Substance: LEUPROLIDE ACETATE
     Indication: PROSTATE CANCER
     Dosage: UNK
     Route: 058
     Dates: start: 20160429, end: 20160429
  5. PERMIXON [Concomitant]
     Active Substance: SAW PALMETTO
  6. TAHOR [Concomitant]
     Active Substance: ATORVASTATIN CALCIUM
  7. PERINDOPRIL [Concomitant]
     Active Substance: PERINDOPRIL
  8. LERCAN [Concomitant]
     Active Substance: LERCANIDIPINE
  9. BISOPROLOL [Concomitant]
     Active Substance: BISOPROLOL
  10. LASILIX                            /00032601/ [Concomitant]
     Active Substance: FUROSEMIDE
  11. KARDEGIC [Concomitant]
     Active Substance: ASPIRIN LYSINE

REACTIONS (4)
  - Sepsis [Unknown]
  - Pituitary haemorrhage [Recovered/Resolved with Sequelae]
  - Adrenal insufficiency [Recovered/Resolved with Sequelae]
  - Hallucination, visual [Unknown]

NARRATIVE: CASE EVENT DATE: 20160502
